FAERS Safety Report 24593040 (Version 1)
Quarter: 2024Q4

REPORT INFORMATION
  Report Type: Spontaneous
  Country: US (occurrence: None)
  Receive Date: 20241107
  Receipt Date: 20241107
  Transmission Date: 20250115
  Serious: No
  Sender: Public
  Company Number: None

PATIENT
  Age: 83 Year
  Sex: Female

DRUGS (1)
  1. VEVYE [Suspect]
     Active Substance: CYCLOSPORINE
     Dosage: FREQUENCY : TWICE A DAY;?
     Route: 047
     Dates: start: 20241105, end: 20241106

REACTIONS (5)
  - Instillation site irritation [None]
  - Instillation site irritation [None]
  - Ocular hyperaemia [None]
  - Therapy cessation [None]
  - Eye swelling [None]

NARRATIVE: CASE EVENT DATE: 20241105
